FAERS Safety Report 20218521 (Version 1)
Quarter: 2021Q4

REPORT INFORMATION
  Report Type: Spontaneous
  Country: US (occurrence: US)
  Receive Date: 20211222
  Receipt Date: 20211222
  Transmission Date: 20220303
  Serious: No
  Sender: FDA-Public Use
  Company Number: US-BioHaven Pharmaceuticals-2021BHV000648

PATIENT
  Age: 40 Year
  Sex: Female
  Weight: 124.85 kg

DRUGS (2)
  1. NURTEC ODT [Suspect]
     Active Substance: RIMEGEPANT SULFATE
     Indication: Migraine
     Dosage: TAKING NURTEC FOR A COUPLE OF MONTHS
     Route: 060
  2. TOPAMAX [Suspect]
     Active Substance: TOPIRAMATE
     Indication: Headache
     Route: 065

REACTIONS (2)
  - Ageusia [Not Recovered/Not Resolved]
  - Taste disorder [Not Recovered/Not Resolved]
